FAERS Safety Report 6018666-1 (Version None)
Quarter: 2008Q4

REPORT INFORMATION
  Report Type: 
  Country: None (occurrence: None)
  Receive Date: 20081222
  Receipt Date: 20081212
  Transmission Date: 20090506
  Serious: Yes (Other)
  Sender: FDA-Public Use
  Company Number: CHPA2008US22155

PATIENT
  Age: 31 Year
  Sex: Male

DRUGS (2)
  1. MAALOX MS TOTLA STOMACH RELIEF (NCH) (BISMUTH SUBSALICYLATE) SUSPENSIO [Suspect]
     Indication: DYSPEPSIA
     Dosage: SWIG FROM BOTTLE, ONCE/SINGLE, ORAL; SWG FROM BOTTLE, ONCE/SINGLE, ORAL
     Route: 048
     Dates: start: 20081206, end: 20081206
  2. MAALOX MS TOTLA STOMACH RELIEF (NCH) (BISMUTH SUBSALICYLATE) SUSPENSIO [Suspect]
     Indication: DYSPEPSIA
     Dosage: SWIG FROM BOTTLE, ONCE/SINGLE, ORAL; SWG FROM BOTTLE, ONCE/SINGLE, ORAL
     Route: 048
     Dates: start: 20081210, end: 20081210

REACTIONS (3)
  - FAECES DISCOLOURED [None]
  - GASTROINTESTINAL HAEMORRHAGE [None]
  - MELAENA [None]
